FAERS Safety Report 20730302 (Version 1)
Quarter: 2022Q2

REPORT INFORMATION
  Report Type: Spontaneous
  Country: US (occurrence: None)
  Receive Date: 20220419
  Receipt Date: 20220419
  Transmission Date: 20220721
  Serious: Yes (Other)
  Sender: FDA-Public Use
  Company Number: None

PATIENT
  Age: 88 Year
  Sex: Female

DRUGS (1)
  1. AFINITOR [Suspect]
     Active Substance: EVEROLIMUS
     Indication: Malignant neoplasm of thymus
     Dosage: FREQUENCY : DAILY;?
     Route: 048
     Dates: start: 20191206

REACTIONS (2)
  - Platelet count decreased [None]
  - Therapy interrupted [None]

NARRATIVE: CASE EVENT DATE: 20220419
